FAERS Safety Report 10737476 (Version 1)
Quarter: 2015Q1

REPORT INFORMATION
  Report Type: Spontaneous
  Country: FR (occurrence: FR)
  Receive Date: 20150126
  Receipt Date: 20150126
  Transmission Date: 20150721
  Serious: Yes (Hospitalization)
  Sender: FDA-Public Use
  Company Number: FR-009507513-1501FRA009854

PATIENT
  Age: 6 Year
  Sex: Male

DRUGS (3)
  1. GRAZAX [Suspect]
     Active Substance: PHLEUM PRATENSE POLLEN
     Indication: PRODUCT USED FOR UNKNOWN INDICATION
     Dosage: DOSE:75000 SQ-T, DAILY
     Route: 060
     Dates: start: 201501, end: 201501
  2. ZINC (UNSPECIFIED) [Concomitant]
     Dosage: UNK
  3. VITAMIN A [Concomitant]
     Active Substance: VITAMIN A
     Dosage: UNK

REACTIONS (2)
  - Hallucination, visual [Unknown]
  - Hallucination, tactile [Unknown]

NARRATIVE: CASE EVENT DATE: 20150115
